FAERS Safety Report 16409382 (Version 1)
Quarter: 2019Q2

REPORT INFORMATION
  Report Type: Spontaneous
  Country: US (occurrence: US)
  Receive Date: 20190502
  Receipt Date: 20190502
  Transmission Date: 20190711
  Serious: No
  Sender: FDA-Public Use
  Company Number: None

PATIENT
  Age: 63 Year
  Sex: Female

DRUGS (1)
  1. XALKORI [Suspect]
     Active Substance: CRIZOTINIB
     Route: 048
     Dates: start: 201701

REACTIONS (7)
  - Skin disorder [None]
  - Skin hypopigmentation [None]
  - Rash pruritic [None]
  - Urticaria [None]
  - Diarrhoea [None]
  - Skin hyperpigmentation [None]
  - Photosensitivity reaction [None]

NARRATIVE: CASE EVENT DATE: 20190502
